FAERS Safety Report 7024238-2 (Version None)
Quarter: 2010Q4

REPORT INFORMATION
  Report Type: 
  Country: None (occurrence: None)
  Receive Date: 20101001
  Receipt Date: 20100920
  Transmission Date: 20110411
  Serious: Yes (Other)
  Sender: FDA-Public Use
  Company Number: AR-ROCHE-729835

PATIENT
  Sex: Female
  Weight: 85.5 kg

DRUGS (9)
  1. TOCILIZUMAB [Suspect]
     Indication: RHEUMATOID ARTHRITIS
     Dosage: FORM: INFUSION, LAST DOSE PRIOR TO SAE: 25 JANUARY 2007.
     Route: 042
     Dates: start: 20061228, end: 20070419
  2. BLINDED TOCILIZUMAB [Suspect]
     Indication: RHEUMATOID ARTHRITIS
     Dosage: FORM: INFUSION. THE PATIENT WAS PREVIOUSLY ENROLLED IN WA18062/WA18063/WA17824.
     Route: 042
  3. METHOTREXATE [Suspect]
     Indication: RHEUMATOID ARTHRITIS
     Route: 065
     Dates: start: 20061009, end: 20070221
  4. DICLOFENAC SODIUM [Concomitant]
     Dates: start: 20050311
  5. FOLIC ACID [Concomitant]
     Dates: start: 20051202
  6. HIDRENOX A [Concomitant]
     Dates: start: 20061215
  7. ATORVASTATIN CALCIUM [Concomitant]
     Dates: start: 20061229
  8. LOSARTAN [Concomitant]
     Dates: start: 20070112
  9. RANITIDINE [Concomitant]
     Dates: start: 20061003, end: 20070221

REACTIONS (1)
  - LEUKOCYTOCLASTIC VASCULITIS [None]
